FAERS Safety Report 15876006 (Version 2)
Quarter: 2019Q1

REPORT INFORMATION
  Report Type: Report from Study
  Country: US (occurrence: US)
  Receive Date: 20190126
  Receipt Date: 20190222
  Transmission Date: 20190417
  Serious: Yes (Death, Hospitalization)
  Sender: FDA-Public Use
  Company Number: PHEH2019US003825

PATIENT
  Sex: Female

DRUGS (1)
  1. PROMACTA [Suspect]
     Active Substance: ELTROMBOPAG OLAMINE
     Indication: IMMUNE THROMBOCYTOPENIC PURPURA
     Dosage: 50 MG, QD
     Route: 048
     Dates: start: 20181114, end: 20181224

REACTIONS (7)
  - Condition aggravated [Fatal]
  - Hypothyroidism [Fatal]
  - Immune thrombocytopenic purpura [Fatal]
  - Asthma [Fatal]
  - Anaemia [Fatal]
  - Deep vein thrombosis [Fatal]
  - Respiratory failure [Fatal]
